FAERS Safety Report 7441998-7 (Version None)
Quarter: 2011Q2

REPORT INFORMATION
  Report Type: 
  Country: None (occurrence: None)
  Receive Date: 20110428
  Receipt Date: 20100929
  Transmission Date: 20111010
  Serious: No
  Sender: FDA-Public Use
  Company Number: US-ASTRAZENECA-2010SE46016

PATIENT
  Sex: Female

DRUGS (2)
  1. ZOMIG [Suspect]
     Indication: HEADACHE
     Dosage: ONCE
     Route: 048
     Dates: start: 20100901
  2. ZOMIG [Suspect]
     Indication: MIGRAINE
     Dosage: ONCE
     Route: 048
     Dates: start: 20100901

REACTIONS (1)
  - LIMB DISCOMFORT [None]
